FAERS Safety Report 17781355 (Version 1)
Quarter: 2020Q2

REPORT INFORMATION
  Report Type: Spontaneous
  Country: DE (occurrence: DE)
  Receive Date: 20200513
  Receipt Date: 20200513
  Transmission Date: 20200714
  Serious: Yes (Disabling)
  Sender: FDA-Public Use
  Company Number: NVSC2020DE128312

PATIENT
  Age: 31 Year
  Sex: Male
  Weight: 77 kg

DRUGS (10)
  1. OMEPRAZOLE. [Suspect]
     Active Substance: OMEPRAZOLE
     Indication: PRODUCT USED FOR UNKNOWN INDICATION
     Route: 065
  2. NEORECORMON [Suspect]
     Active Substance: ERYTHROPOIETIN
     Dosage: 3000 DF
     Route: 042
     Dates: start: 20000512, end: 20010411
  3. NEORECORMON [Suspect]
     Active Substance: ERYTHROPOIETIN
     Dosage: 3000 DF
     Route: 058
     Dates: start: 19960501, end: 19980408
  4. THIOGAMMA [Suspect]
     Active Substance: .ALPHA.-LIPOIC ACID
     Indication: PRODUCT USED FOR UNKNOWN INDICATION
     Route: 048
  5. CALCIUM ACETATE. [Suspect]
     Active Substance: CALCIUM ACETATE
     Indication: PRODUCT USED FOR UNKNOWN INDICATION
     Route: 065
  6. DILATREND [Suspect]
     Active Substance: CARVEDILOL
     Indication: PRODUCT USED FOR UNKNOWN INDICATION
     Route: 065
  7. NEORECORMON [Suspect]
     Active Substance: ERYTHROPOIETIN
     Indication: NEPHROGENIC ANAEMIA
     Dosage: 2000 DF
     Route: 058
     Dates: start: 19951206, end: 19960429
  8. NEORECORMON [Suspect]
     Active Substance: ERYTHROPOIETIN
     Dosage: 5000 DF
     Route: 042
     Dates: start: 19980724, end: 20000510
  9. ATACAND [Suspect]
     Active Substance: CANDESARTAN CILEXETIL
     Indication: PRODUCT USED FOR UNKNOWN INDICATION
     Dosage: REPORTED AS LONG TERM THERAPY
     Route: 065
     Dates: start: 19980403
  10. NEORECORMON [Suspect]
     Active Substance: ERYTHROPOIETIN
     Dosage: 4000 DF
     Route: 058
     Dates: start: 19980410, end: 19980722

REACTIONS (2)
  - Refractory cytopenia with unilineage dysplasia [Not Recovered/Not Resolved]
  - Drug ineffective [Not Recovered/Not Resolved]

NARRATIVE: CASE EVENT DATE: 200205
